FAERS Safety Report 17992289 (Version 1)
Quarter: 2020Q3

REPORT INFORMATION
  Report Type: Report from Study
  Country: FR (occurrence: FR)
  Receive Date: 20200707
  Receipt Date: 20200707
  Transmission Date: 20201103
  Serious: Yes (Other)
  Sender: FDA-Public Use
  Company Number: FR-CELGENEUS-FRA-20200700692

PATIENT
  Age: 69 Year
  Sex: Male
  Weight: 79 kg

DRUGS (6)
  1. IDHIFA [Suspect]
     Active Substance: ENASIDENIB MESYLATE
     Route: 048
     Dates: start: 20200625
  2. TACRO [Concomitant]
     Active Substance: TACROLIMUS
     Indication: HYPERLIPIDAEMIA
     Dosage: 40
     Route: 048
  3. ATENOL [Concomitant]
     Active Substance: ATENOLOL
     Indication: HYPERTENSION
     Dosage: 25
     Route: 065
  4. IDHIFA [Suspect]
     Active Substance: ENASIDENIB MESYLATE
     Indication: ACUTE MYELOID LEUKAEMIA
     Route: 048
     Dates: start: 201912
  5. EZETROL [Concomitant]
     Active Substance: EZETIMIBE
     Indication: HYPERLIPIDAEMIA
     Dosage: 10
     Route: 048
  6. NOVONORM [Concomitant]
     Active Substance: REPAGLINIDE
     Indication: DIABETES MELLITUS
     Route: 048

REACTIONS (1)
  - Liver disorder [Recovered/Resolved with Sequelae]

NARRATIVE: CASE EVENT DATE: 20200527
